FAERS Safety Report 8883196 (Version 3)
Quarter: 2018Q3

REPORT INFORMATION
  Report Type: Report from Study
  Country: FR (occurrence: FR)
  Receive Date: 20121102
  Receipt Date: 20180719
  Transmission Date: 20181010
  Serious: Yes (Other)
  Sender: FDA-Public Use
  Company Number: FR-ROCHE-1149523

PATIENT
  Age: 77 Year
  Sex: Male
  Weight: 82 kg

DRUGS (18)
  1. FOLINATE DE CALCIUM [Concomitant]
     Active Substance: LEUCOVORIN CALCIUM
     Indication: ANAEMIA
     Route: 065
  2. RITUXIMAB. [Suspect]
     Active Substance: RITUXIMAB
     Route: 058
     Dates: start: 20120723
  3. DARBEPOETIN ALFA [Concomitant]
     Active Substance: DARBEPOETIN ALFA
     Indication: ANAEMIA
     Route: 065
     Dates: start: 20120213, end: 20120416
  4. PARACETAMOL [Concomitant]
     Active Substance: ACETAMINOPHEN
     Indication: PELVIC PAIN
     Route: 065
     Dates: start: 20120319, end: 20120319
  5. RITUXIMAB. [Suspect]
     Active Substance: RITUXIMAB
     Route: 058
     Dates: start: 20120625
  6. COTRIMOXAZOLE [Concomitant]
     Active Substance: SULFAMETHOXAZOLE\TRIMETHOPRIM
     Route: 065
     Dates: start: 20120213
  7. IXPRIM [Concomitant]
     Active Substance: ACETAMINOPHEN\TRAMADOL HYDROCHLORIDE
     Indication: ARTHRALGIA
     Route: 065
     Dates: start: 20120625
  8. RITUXIMAB. [Suspect]
     Active Substance: RITUXIMAB
     Dosage: DATE OF LAST DOSE : 17/SEP/2012
     Route: 058
     Dates: start: 20120416
  9. PENICILLINS [Concomitant]
     Active Substance: PENICILLIN
     Dosage: 2 MUI
     Route: 065
     Dates: start: 20120213
  10. VALACICLOVIR [Concomitant]
     Active Substance: VALACYCLOVIR HYDROCHLORIDE
     Route: 065
     Dates: start: 20120213
  11. METHYLPREDNISOLONE. [Concomitant]
     Active Substance: METHYLPREDNISOLONE
     Route: 065
     Dates: start: 20120220, end: 20120220
  12. CORTANCYL [Concomitant]
     Active Substance: PREDNISONE
     Indication: ARTHRALGIA
     Route: 065
     Dates: start: 20120329, end: 20120329
  13. RITUXIMAB. [Suspect]
     Active Substance: RITUXIMAB
     Route: 058
     Dates: start: 20120514
  14. RITUXIMAB. [Suspect]
     Active Substance: RITUXIMAB
     Route: 058
     Dates: start: 20120917
  15. RITUXIMAB. [Suspect]
     Active Substance: RITUXIMAB
     Indication: B-CELL LYMPHOMA
     Dosage: DATE OF LAST DOSE : 17/SEP/2012
     Route: 042
     Dates: start: 20120220
  16. RITUXIMAB. [Suspect]
     Active Substance: RITUXIMAB
     Route: 058
     Dates: start: 20120820
  17. METHYLPREDNISOLONE. [Concomitant]
     Active Substance: METHYLPREDNISOLONE
     Route: 065
     Dates: start: 20120416, end: 20120416
  18. RITUXIMAB. [Suspect]
     Active Substance: RITUXIMAB
     Indication: B-CELL LYMPHOMA
     Dosage: DATE OF LAST DOSE : 17/SEP/2012
     Route: 058
     Dates: start: 20120319

REACTIONS (1)
  - Injection site reaction [Recovered/Resolved]

NARRATIVE: CASE EVENT DATE: 20120917
